FAERS Safety Report 9377462 (Version 1)
Quarter: 2013Q3

REPORT INFORMATION
  Report Type: Spontaneous
  Country: US (occurrence: US)
  Receive Date: 20130701
  Receipt Date: 20130701
  Transmission Date: 20140515
  Serious: No
  Sender: FDA-Public Use
  Company Number: US-ABBOTT-13P-163-1064387-00

PATIENT
  Age: 45 Year
  Sex: Male
  Weight: 88.08 kg

DRUGS (1)
  1. NORVIR [Suspect]
     Indication: HIV INFECTION
     Dates: start: 201007

REACTIONS (2)
  - Nephrolithiasis [Not Recovered/Not Resolved]
  - Renal colic [Unknown]
